FAERS Safety Report 9725503 (Version 3)
Quarter: 2014Q1

REPORT INFORMATION
  Report Type: Spontaneous
  Country: JP (occurrence: JP)
  Receive Date: 20131203
  Receipt Date: 20140102
  Transmission Date: 20141002
  Serious: Yes (Other)
  Sender: FDA-Public Use
  Company Number: PHHY2013JP138823

PATIENT
  Sex: Female

DRUGS (3)
  1. FEMARA [Suspect]
     Indication: METASTASES TO BONE MARROW
     Dosage: 2.5 MG, DAILY
     Route: 048
     Dates: start: 20111117, end: 20120223
  2. ENDOXAN//CYCLOPHOSPHAMIDE MONOHYDRATE [Suspect]
     Indication: BREAST CANCER
  3. XELODA [Suspect]

REACTIONS (1)
  - Bone marrow failure [Not Recovered/Not Resolved]
